FAERS Safety Report 24304397 (Version 2)
Quarter: 2024Q3

REPORT INFORMATION
  Report Type: Spontaneous
  Country: US (occurrence: US)
  Receive Date: 20240910
  Receipt Date: 20240924
  Transmission Date: 20241017
  Serious: Yes (Death, Life-Threatening, Other)
  Sender: PFIZER
  Company Number: US-PFIZER INC-PV202400117203

PATIENT
  Age: 5 Year
  Sex: Female
  Weight: 16.4 kg

DRUGS (1)
  1. CARBOCAINE [Suspect]
     Active Substance: MEPIVACAINE HYDROCHLORIDE
     Indication: Local anaesthesia
     Dosage: MAXILLARY AND MANDIBULAR INJECTIONS OF FIVE CARTRIDGES (9 ML)

REACTIONS (3)
  - Brain injury [Fatal]
  - Cardio-respiratory arrest [Fatal]
  - Overdose [Fatal]
